FAERS Safety Report 12991965 (Version 1)
Quarter: 2016Q4

REPORT INFORMATION
  Report Type: Spontaneous
  Country: RU (occurrence: RU)
  Receive Date: 20161201
  Receipt Date: 20161201
  Transmission Date: 20170207
  Serious: Yes (Hospitalization)
  Sender: FDA-Public Use
  Company Number: RU-ASTRAZENECA-2016SF25621

PATIENT
  Age: 68 Year
  Sex: Female
  Weight: 60 kg

DRUGS (5)
  1. ATORVASTATIN [Concomitant]
     Active Substance: ATORVASTATIN
  2. CONCOR [Concomitant]
     Active Substance: BISOPROLOL FUMARATE
  3. BRILINTA [Suspect]
     Active Substance: TICAGRELOR
     Indication: MYOCARDIAL INFARCTION
     Route: 048
  4. VALZ N [Concomitant]
     Active Substance: HYDROCHLOROTHIAZIDE\VALSARTAN
  5. ESCORDI COR [Concomitant]

REACTIONS (5)
  - Off label use [Not Recovered/Not Resolved]
  - Arthritis [Not Recovered/Not Resolved]
  - Angina pectoris [Unknown]
  - Tachycardia [Unknown]
  - Product use issue [Not Recovered/Not Resolved]

NARRATIVE: CASE EVENT DATE: 201603
